FAERS Safety Report 4602141-2 (Version None)
Quarter: 2005Q2

REPORT INFORMATION
  Report Type: 
  Country: None (occurrence: None)
  Receive Date: 20050215
  Receipt Date: 20040325
  Transmission Date: 20051028
  Serious: Yes (Other)
  Sender: FDA-Public Use
  Company Number: MC200400088

PATIENT
  Sex: Female
  Weight: 60 kg

DRUGS (3)
  1. ANGIOMAX [Suspect]
     Indication: ANTICOAGULANT THERAPY
     Dosage: 0.75 MG/KG, BOLUS, IV BOLUS
     Route: 040
     Dates: start: 20040325, end: 20040325
  2. HEPARIN [Concomitant]
  3. REOPRO [Concomitant]

REACTIONS (1)
  - INJECTION SITE HAEMORRHAGE [None]
